FAERS Safety Report 17813232 (Version 1)
Quarter: 2020Q2

REPORT INFORMATION
  Report Type: Report from Study
  Country: US (occurrence: US)
  Receive Date: 20200521
  Receipt Date: 20200521
  Transmission Date: 20200714
  Serious: Yes (Death, Hospitalization)
  Sender: FDA-Public Use
  Company Number: US-BAUSCH-BL-2018-019013

PATIENT
  Age: 76 Year
  Sex: Male

DRUGS (3)
  1. XIFAXAN [Suspect]
     Active Substance: RIFAXIMIN
     Indication: HEPATIC ENCEPHALOPATHY
     Route: 048
     Dates: start: 201410, end: 2015
  2. LACTULOSE. [Concomitant]
     Active Substance: LACTULOSE
     Indication: PRODUCT USED FOR UNKNOWN INDICATION
     Route: 048
     Dates: end: 202005
  3. XIFAXAN [Suspect]
     Active Substance: RIFAXIMIN
     Dosage: RE-STARTED
     Route: 048
     Dates: start: 201507, end: 202005

REACTIONS (11)
  - Dementia [Fatal]
  - Diarrhoea [Unknown]
  - Memory impairment [Recovering/Resolving]
  - Therapy interrupted [Unknown]
  - Hepatic encephalopathy [Fatal]
  - Disease progression [Fatal]
  - Hospitalisation [Unknown]
  - Gait disturbance [Recovering/Resolving]
  - Inability to afford medication [Unknown]
  - Hypophagia [Unknown]
  - Insurance issue [Unknown]

NARRATIVE: CASE EVENT DATE: 2015
